FAERS Safety Report 16968303 (Version 1)
Quarter: 2019Q4

REPORT INFORMATION
  Report Type: Spontaneous
  Country: DE (occurrence: DE)
  Receive Date: 20191028
  Receipt Date: 20191028
  Transmission Date: 20200122
  Serious: Yes (Hospitalization, Other)
  Sender: FDA-Public Use
  Company Number: DE-CELLTRION INC.-2018DE017279

PATIENT

DRUGS (1)
  1. INFLIXIMAB (UNKNOWN) [Suspect]
     Active Substance: INFLIXIMAB
     Indication: TOXIC EPIDERMAL NECROLYSIS
     Dosage: 5 MG/KG, SINGLE (BW), 1 TOTAL
     Route: 065

REACTIONS (3)
  - Product use in unapproved indication [Unknown]
  - Staphylococcal infection [Recovered/Resolved]
  - Off label use [Unknown]
